FAERS Safety Report 10868706 (Version 1)
Quarter: 2015Q1

REPORT INFORMATION
  Report Type: Spontaneous
  Country: US (occurrence: US)
  Receive Date: 20150225
  Receipt Date: 20150225
  Transmission Date: 20150721
  Serious: No
  Sender: FDA-Public Use
  Company Number: US-MYLANLABS-2014S1002838

PATIENT
  Age: 21 Year
  Sex: Female
  Weight: 76 kg

DRUGS (1)
  1. LAMOTRIGINE TABLETS, USP [Suspect]
     Active Substance: LAMOTRIGINE
     Indication: AFFECTIVE DISORDER
     Dosage: 200 MG,QD
     Route: 048
     Dates: end: 20140204

REACTIONS (2)
  - Eosinophil count increased [Not Recovered/Not Resolved]
  - Lung infiltration [Not Recovered/Not Resolved]

NARRATIVE: CASE EVENT DATE: 20140129
